FAERS Safety Report 6284635-X (Version None)
Quarter: 2009Q3

REPORT INFORMATION
  Report Type: 
  Country: None (occurrence: None)
  Receive Date: 20090727
  Receipt Date: 20090713
  Transmission Date: 20100115
  Serious: Yes (Hospitalization, Other)
  Sender: FDA-Public Use
  Company Number: US-ELI_LILLY_AND_COMPANY-US200602002065

PATIENT
  Sex: Male
  Weight: 108.84 kg

DRUGS (3)
  1. ZYPREXA [Suspect]
     Indication: DEPRESSION
     Dosage: UNK, UNK
     Dates: start: 19960101
  2. ZYPREXA [Suspect]
     Dosage: 5 MG, DAILY (1/D)
     Dates: start: 20011101, end: 20011101
  3. PROZAC [Concomitant]

REACTIONS (12)
  - ANAEMIA [None]
  - ANTIMICROBIAL SUSCEPTIBILITY TEST RESISTANT [None]
  - CELLULITIS [None]
  - DIABETIC KETOACIDOSIS [None]
  - LOCALISED INFECTION [None]
  - NEURALGIA [None]
  - PENILE SWELLING [None]
  - PYREXIA [None]
  - RENAL FAILURE ACUTE [None]
  - RHABDOMYOLYSIS [None]
  - TYPE 1 DIABETES MELLITUS [None]
  - WEIGHT INCREASED [None]
